FAERS Safety Report 4544668-8 (Version None)
Quarter: 2004Q4

REPORT INFORMATION
  Report Type: 
  Country: None (occurrence: None)
  Receive Date: 20041230
  Receipt Date: 20041221
  Transmission Date: 20050328
  Serious: Yes (Death)
  Sender: FDA-Public Use
  Company Number: B0343701A

PATIENT
  Age: 50 Year
  Sex: Female

DRUGS (4)
  1. RETROVIR [Suspect]
     Indication: HIV INFECTION
     Dosage: ORAL
     Route: 048
     Dates: start: 20040204
  2. DIDANOSINE [Suspect]
     Indication: HIV INFECTION
     Dosage: ORAL
     Route: 048
     Dates: start: 20040204
  3. EFAVIRENZ CAPSULE ((EFAVIRENZ) [Suspect]
     Indication: HIV INFECTION
     Dosage: ORAL
     Route: 048
     Dates: start: 20040204
  4. LAMIVUDINE [Concomitant]

REACTIONS (7)
  - ASCITES [None]
  - DISEASE PROGRESSION [None]
  - HEPATIC ENCEPHALOPATHY [None]
  - HEPATIC FAILURE [None]
  - HEPATITIS FULMINANT [None]
  - LIVER TRANSPLANT [None]
  - PROTHROMBIN TIME PROLONGED [None]
